FAERS Safety Report 9027981 (Version 1)
Quarter: 2013Q1

REPORT INFORMATION
  Report Type: Spontaneous
  Country: US (occurrence: None)
  Receive Date: 20130114
  Receipt Date: 20130114
  Transmission Date: 20140127
  Serious: Yes (Disabling)
  Sender: FDA-Public Use
  Company Number: None

PATIENT
  Age: 61 Year
  Sex: Female
  Weight: 15.88 kg

DRUGS (1)
  1. FLAGYL [Suspect]
     Indication: CLOSTRIDIUM DIFFICILE INFECTION
     Dosage: 500 MG 1 3X-4WKS, THEN 12X-2WKS, THEN 1 FOR 2 WKS ORAL
     Route: 048
     Dates: start: 20120220, end: 20120229

REACTIONS (1)
  - Neuropathy peripheral [None]
